FAERS Safety Report 6066158-6 (Version None)
Quarter: 2009Q1

REPORT INFORMATION
  Report Type: 
  Country: None (occurrence: None)
  Receive Date: 20090130
  Receipt Date: 20090121
  Transmission Date: 20090719
  Serious: Yes (Hospitalization, Disabling, Other)
  Sender: FDA-Public Use
  Company Number: TRP_02513_2008

PATIENT
  Age: 50 Year
  Sex: Male
  Weight: 62.2 kg

DRUGS (4)
  1. ADVAFERON [Suspect]
     Indication: HEPATITIS C
     Dosage: 12 MILLION IU 3X/WEEK; SUBCUTANEOUS
     Route: 058
     Dates: start: 20050606, end: 20051203
  2. CEFOTAXIME [Concomitant]
  3. METHYLPREDNISILONE [Concomitant]
  4. PREDNISOLONE [Concomitant]

REACTIONS (10)
  - ACUTE PRERENAL FAILURE [None]
  - ANTI-NEUTROPHIL CYTOPLASMIC ANTIBODY POSITIVE VASCULITIS [None]
  - ASCITES [None]
  - HEPATIC ENCEPHALOPATHY [None]
  - OEDEMA PERIPHERAL [None]
  - PLEURAL EFFUSION [None]
  - PYREXIA [None]
  - SKIN GRAFT [None]
  - SKIN ULCER [None]
  - TOE AMPUTATION [None]
